FAERS Safety Report 16006377 (Version 1)
Quarter: 2019Q1

REPORT INFORMATION
  Report Type: Report from Study
  Country: ES (occurrence: ES)
  Receive Date: 20190226
  Receipt Date: 20190226
  Transmission Date: 20190418
  Serious: Yes (Hospitalization)
  Sender: FDA-Public Use
  Company Number: ES-PFIZER INC-2019022282

PATIENT
  Age: 71 Year
  Sex: Female

DRUGS (7)
  1. ALDACTONE [Suspect]
     Active Substance: SPIRONOLACTONE
     Dosage: 50 MG, 1X/DAY (DOSAGE INTERVAL 24H; 1/2-0-0)
     Route: 048
     Dates: start: 20180104, end: 20180119
  2. ESIDREX [Interacting]
     Active Substance: HYDROCHLOROTHIAZIDE
     Dosage: 12.5 MG, 1X/DAY (INTERVAL 24H, 1/2-0-0)
     Route: 048
     Dates: start: 20160101, end: 20180119
  3. LANACORDIN PEDIATRICO [Concomitant]
     Dosage: 2 ML, DAILY
     Route: 048
     Dates: start: 20160101
  4. BISOPROLOL [Concomitant]
     Active Substance: BISOPROLOL
     Dosage: 0.5 DF, 2X/DAY (1/2-0-1/2)
     Route: 048
     Dates: start: 20160101
  5. SINTROM [Concomitant]
     Active Substance: ACENOCOUMAROL
     Dosage: UNK (SP)
     Route: 065
     Dates: start: 19980101
  6. LEVOTIROXINA SANOFI [Concomitant]
     Dosage: 25 UG, DAILY
     Route: 065
     Dates: start: 20160101
  7. FUROSEMID [Interacting]
     Active Substance: FUROSEMIDE
     Dosage: UNK (2-0-2-1)
     Route: 048
     Dates: start: 20180104, end: 20180119

REACTIONS (2)
  - Drug interaction [Recovered/Resolved]
  - Hyponatraemia [Recovered/Resolved]

NARRATIVE: CASE EVENT DATE: 20180208
